FAERS Safety Report 20173867 (Version 2)
Quarter: 2021Q4

REPORT INFORMATION
  Report Type: Spontaneous
  Country: AM (occurrence: None)
  Receive Date: 20211213
  Receipt Date: 20211216
  Transmission Date: 20220303
  Serious: Yes (Other)
  Sender: FDA-Public Use
  Company Number: AM-ROCHE-2974369

PATIENT
  Age: 53 Year
  Sex: Female

DRUGS (3)
  1. HERCEPTIN [Suspect]
     Active Substance: TRASTUZUMAB
     Indication: Breast cancer stage III
     Route: 065
  2. LAPATINIB [Concomitant]
     Active Substance: LAPATINIB
  3. XELODA [Concomitant]
     Active Substance: CAPECITABINE

REACTIONS (2)
  - Metastases to central nervous system [Unknown]
  - Disease progression [Unknown]
